FAERS Safety Report 15557161 (Version 1)
Quarter: 2018Q4

REPORT INFORMATION
  Report Type: Spontaneous
  Country: IT (occurrence: IT)
  Receive Date: 20181026
  Receipt Date: 20181026
  Transmission Date: 20190205
  Serious: Yes (Other)
  Sender: FDA-Public Use
  Company Number: IT-APOPHARMA USA, INC.-2018AP023125

PATIENT
  Age: 20 Year
  Sex: Male

DRUGS (5)
  1. FERRIPROX [Suspect]
     Active Substance: DEFERIPRONE
     Indication: SALVAGE THERAPY
     Dosage: 75 MG/KG, QD
     Route: 048
  2. WARFARIN [Suspect]
     Active Substance: WARFARIN
     Indication: ATRIAL FIBRILLATION
     Route: 065
  3. CARVEDILOL. [Concomitant]
     Active Substance: CARVEDILOL
     Indication: ATRIAL FIBRILLATION
     Dosage: UNINTERRUPTED IV 24-HOUR/PER/DAY
     Route: 042
  4. FERRIPROX [Suspect]
     Active Substance: DEFERIPRONE
     Dosage: UNK
     Route: 048
  5. DEFEROXAMINE [Suspect]
     Active Substance: DEFEROXAMINE\DEFEROXAMINE MESYLATE
     Indication: IRON OVERLOAD
     Route: 065

REACTIONS (14)
  - Depressed level of consciousness [Recovered/Resolved]
  - Hepatomegaly [Unknown]
  - Dehydration [Unknown]
  - Jaundice [Unknown]
  - Influenza like illness [Unknown]
  - Hypokalaemia [Recovered/Resolved]
  - Renal tubular disorder [Recovered/Resolved]
  - Electrolyte imbalance [Recovered/Resolved]
  - Proteinuria [Recovered/Resolved]
  - Coagulopathy [Unknown]
  - Asthenia [Unknown]
  - Drug-induced liver injury [Recovered/Resolved]
  - Hypophosphataemia [Recovered/Resolved]
  - Glycosuria [Recovered/Resolved]
